FAERS Safety Report 17269995 (Version 2)
Quarter: 2020Q1

REPORT INFORMATION
  Report Type: Spontaneous
  Country: US (occurrence: US)
  Receive Date: 20200114
  Receipt Date: 20200212
  Transmission Date: 20200409
  Serious: No
  Sender: FDA-Public Use
  Company Number: US-PFIZER INC-2020017645

PATIENT
  Age: 59 Year
  Sex: Female

DRUGS (1)
  1. IBRANCE [Suspect]
     Active Substance: PALBOCICLIB
     Indication: BREAST CANCER
     Dosage: 75 MG, DAILY
     Dates: start: 20200117

REACTIONS (5)
  - Alopecia [Unknown]
  - Rash [Unknown]
  - Red blood cell count decreased [Unknown]
  - Pruritus [Unknown]
  - White blood cell count decreased [Unknown]
